FAERS Safety Report 19906065 (Version 2)
Quarter: 2021Q4

REPORT INFORMATION
  Report Type: Spontaneous
  Country: NZ (occurrence: NZ)
  Receive Date: 20210930
  Receipt Date: 20211201
  Transmission Date: 20220304
  Serious: Yes (Death, Hospitalization)
  Sender: FDA-Public Use
  Company Number: NZ-MYLANLABS-2021M1067694

PATIENT
  Age: 71 Year
  Sex: Male

DRUGS (21)
  1. CLOZARIL [Suspect]
     Active Substance: CLOZAPINE
     Indication: Schizophrenia
     Dosage: 50 MILLIGRAM NOCTE
     Route: 048
     Dates: start: 20190801, end: 201909
  2. CLOZARIL [Suspect]
     Active Substance: CLOZAPINE
     Indication: Psychotic disorder
  3. CLOZARIL [Suspect]
     Active Substance: CLOZAPINE
     Indication: Parkinson^s disease
  4. SINEMET [Concomitant]
     Active Substance: CARBIDOPA\LEVODOPA
     Dosage: 2 AT 6:00, 1 AT 8:00, HALF AT 10:00, 1 AT 12:00, 14:00, 1 AND A HALF AT 16:00, 18:00, 1 AT 20:00
  5. BENSERAZIDE HYDROCHLORIDE\LEVODOPA [Concomitant]
     Active Substance: BENSERAZIDE HYDROCHLORIDE\LEVODOPA
     Dosage: TWO AT 0600 + Q15MIN PRN FOR SEVERE RIGIDITY OVERNIGH
  6. CARBIDOPA\LEVODOPA [Concomitant]
     Active Substance: CARBIDOPA\LEVODOPA
     Dosage: ONE AND A HALF AT 22:00
  7. ENTACAPONE [Concomitant]
     Active Substance: ENTACAPONE
     Dosage: ONE AT 06:00, 14:00, 16:00, 18:00, 20:00 AND 22:00
  8. VENLAFAXINE [Concomitant]
     Active Substance: VENLAFAXINE HYDROCHLORIDE
     Dosage: 225 MG MANE
  9. GABAPENTIN [Concomitant]
     Active Substance: GABAPENTIN
     Dosage: TWO TDS
  10. APOMORPHINE [Concomitant]
     Active Substance: APOMORPHINE
     Dosage: INFUSION PUMP 3 MG/HOUR (8 AM TO 10 PM)
  11. LORAZEPAM [Concomitant]
     Active Substance: LORAZEPAM
     Dosage: HALF AT 06:00, HALF AT 22:00
  12. CLONAZEPAM [Concomitant]
     Active Substance: CLONAZEPAM
     Dosage: 0.25 MG NOCTE
  13. DOMPERIDONE                        /00498202/ [Concomitant]
     Dosage: 10 MG BD
  14. DOXAZOSIN [Concomitant]
     Active Substance: DOXAZOSIN MESYLATE
     Dosage: 4 MG NOCTE
  15. DONEPEZIL [Concomitant]
     Active Substance: DONEPEZIL
     Dosage: 10 MG NOCTE
  16. MORPHINE [Concomitant]
     Active Substance: MORPHINE
     Dosage: 10 MG SR, TWO BD
  17. MORPHINE [Concomitant]
     Active Substance: MORPHINE
     Dosage: 1 MG/ML, 5 ML Q2H PRN
  18. ENSURE [Concomitant]
     Active Substance: AMINO ACIDS\DEXTROSE\ELECTROLYTES NOS\SOYBEAN OIL\VITAMINS
     Dosage: 200 ML BD
  19. ACETAMINOPHEN [Concomitant]
     Active Substance: ACETAMINOPHEN
     Dosage: TWO QID
  20. POLYETHYLENE GLYCOL 3350\POTASSIUM CHLORIDE\SODIUM BICARBONATE\SODIUM [Concomitant]
     Active Substance: POLYETHYLENE GLYCOL 3350\POTASSIUM CHLORIDE\SODIUM BICARBONATE\SODIUM CHLORIDE
     Dosage: UNK
  21. GLYCERIN [Concomitant]
     Active Substance: GLYCERIN
     Dosage: UNK, PRN

REACTIONS (3)
  - Pneumonia aspiration [Fatal]
  - Vomiting [Unknown]
  - Somnolence [Unknown]

NARRATIVE: CASE EVENT DATE: 20210901
